FAERS Safety Report 8604497-2 (Version None)
Quarter: 2012Q3

REPORT INFORMATION
  Report Type: 
  Country: None (occurrence: None)
  Receive Date: 20120806
  Receipt Date: 20120806
  Transmission Date: 20120928
  Serious: No
  Sender: FDA-Public Use
  Company Number: None

PATIENT
  Sex: Female
  Weight: 76 kg

DRUGS (1)
  1. BEVACIZUMAB (RHUMAB VEGF) [Suspect]
     Dosage: 737 MG
     Dates: end: 20120719

REACTIONS (3)
  - CONVULSION [None]
  - PLATELET COUNT DECREASED [None]
  - UNRESPONSIVE TO STIMULI [None]
